FAERS Safety Report 7772637-3 (Version None)
Quarter: 2011Q3

REPORT INFORMATION
  Report Type: 
  Country: None (occurrence: None)
  Receive Date: 20110922
  Receipt Date: 20110121
  Transmission Date: 20111222
  Serious: No
  Sender: FDA-Public Use
  Company Number: US-ASTRAZENECA-2011SE03954

PATIENT
  Age: 62 Year
  Sex: Male

DRUGS (1)
  1. SEROQUEL XR [Suspect]
     Route: 048
     Dates: start: 20101201

REACTIONS (3)
  - SEXUAL DYSFUNCTION [None]
  - CONSTIPATION [None]
  - MYALGIA [None]
